FAERS Safety Report 5738575-2 (Version None)
Quarter: 2008Q2

REPORT INFORMATION
  Report Type: 
  Country: None (occurrence: None)
  Receive Date: 20080514
  Receipt Date: 20080514
  Transmission Date: 20081010
  Serious: Yes (Life-Threatening, Hospitalization, Disabling, Other)
  Sender: FDA-Public Use
  Company Number: None

PATIENT
  Age: 45 Year
  Sex: Female
  Weight: 85.7298 kg

DRUGS (1)
  1. AROMASIN [Suspect]

REACTIONS (36)
  - ABDOMINAL DISTENSION [None]
  - ABDOMINAL PAIN UPPER [None]
  - ACTIVITIES OF DAILY LIVING IMPAIRED [None]
  - AMNESIA [None]
  - ARTHRALGIA [None]
  - BACK PAIN [None]
  - BEDRIDDEN [None]
  - BONE DISORDER [None]
  - BONE PAIN [None]
  - CD4 LYMPHOCYTES ABNORMAL [None]
  - CHILLS [None]
  - DIABETES MELLITUS [None]
  - ENZYME ABNORMALITY [None]
  - FATIGUE [None]
  - FEELING ABNORMAL [None]
  - ILL-DEFINED DISORDER [None]
  - INFECTION [None]
  - INFLAMMATION [None]
  - LABORATORY TEST ABNORMAL [None]
  - LYMPHOPENIA [None]
  - MEDICATION ERROR [None]
  - MUSCULOSKELETAL STIFFNESS [None]
  - NAUSEA [None]
  - NEUROPATHY PERIPHERAL [None]
  - NEUTROPENIA [None]
  - NIGHT SWEATS [None]
  - PAIN [None]
  - PANCREATIC DUCT OBSTRUCTION [None]
  - POOR QUALITY SLEEP [None]
  - PRECANCEROUS CELLS PRESENT [None]
  - PYREXIA [None]
  - RASH [None]
  - SKIN DISORDER [None]
  - SWELLING [None]
  - T-LYMPHOCYTE COUNT ABNORMAL [None]
  - WEIGHT DECREASED [None]
